FAERS Safety Report 9721993 (Version 9)
Quarter: 2016Q1

REPORT INFORMATION
  Report Type: Report from Study
  Country: CA (occurrence: CA)
  Receive Date: 20131202
  Receipt Date: 20160308
  Transmission Date: 20160526
  Serious: Yes (Other)
  Sender: FDA-Public Use
  Company Number: CA-ROCHE-1137392

PATIENT
  Age: 44 Year
  Sex: Male
  Weight: 197.7 kg

DRUGS (27)
  1. FUROSEMIDE. [Concomitant]
     Active Substance: FUROSEMIDE
  2. BENADRYL [Concomitant]
     Active Substance: DIPHENHYDRAMINE HYDROCHLORIDE
     Indication: PREMEDICATION
     Route: 048
     Dates: start: 20101215
  3. METHOTREXATE [Concomitant]
     Active Substance: METHOTREXATE
  4. RITUXAN [Suspect]
     Active Substance: RITUXIMAB
     Route: 042
     Dates: start: 20140114
  5. RITUXAN [Suspect]
     Active Substance: RITUXIMAB
     Route: 042
     Dates: start: 20150112
  6. RITUXAN [Suspect]
     Active Substance: RITUXIMAB
     Route: 042
     Dates: start: 20150511
  7. ACETAMINOPHEN. [Concomitant]
     Active Substance: ACETAMINOPHEN
     Indication: PREMEDICATION
     Route: 048
     Dates: start: 20101215
  8. RITUXAN [Suspect]
     Active Substance: RITUXIMAB
     Route: 042
     Dates: start: 20140107
  9. RITUXAN [Suspect]
     Active Substance: RITUXIMAB
     Route: 042
     Dates: start: 20140121
  10. RITUXAN [Suspect]
     Active Substance: RITUXIMAB
     Route: 042
     Dates: start: 20150105
  11. ACTONEL [Concomitant]
     Active Substance: RISEDRONATE SODIUM
  12. VITAMIN A [Concomitant]
     Active Substance: VITAMIN A
  13. LEUCOVORIN. [Concomitant]
     Active Substance: LEUCOVORIN
  14. RITUXAN [Suspect]
     Active Substance: RITUXIMAB
     Indication: GRANULOMATOSIS WITH POLYANGIITIS
     Route: 042
     Dates: start: 20101215, end: 20120222
  15. VITAMIN B12 [Concomitant]
     Active Substance: CYANOCOBALAMIN
  16. GLICLAZIDE [Concomitant]
     Active Substance: GLICLAZIDE
  17. RITUXAN [Suspect]
     Active Substance: RITUXIMAB
     Route: 042
     Dates: start: 20130115, end: 20130205
  18. RITUXAN [Suspect]
     Active Substance: RITUXIMAB
     Route: 042
     Dates: start: 20150119
  19. MEDROL [Concomitant]
     Active Substance: METHYLPREDNISOLONE
  20. METFORMIN [Concomitant]
     Active Substance: METFORMIN HYDROCHLORIDE
  21. METHYLPREDNISOLONE. [Concomitant]
     Active Substance: METHYLPREDNISOLONE
     Indication: PREMEDICATION
     Route: 042
     Dates: start: 20101215
  22. POTASSIUM CHLORIDE. [Concomitant]
     Active Substance: POTASSIUM CHLORIDE
  23. JANUVIA [Concomitant]
     Active Substance: SITAGLIPTIN PHOSPHATE
  24. PANTOLOC [Concomitant]
     Active Substance: PANTOPRAZOLE SODIUM
  25. SEPTRA [Concomitant]
     Active Substance: SULFAMETHOXAZOLE\TRIMETHOPRIM
     Indication: PROPHYLAXIS
  26. TYLENOL #1 (CANADA) [Concomitant]
     Active Substance: ACETAMINOPHEN\CAFFEINE\CODEINE PHOSPHATE
     Route: 048
     Dates: start: 20101215
  27. DIPHENHYDRAMINE HYDROCHLORIDE. [Concomitant]
     Active Substance: DIPHENHYDRAMINE HYDROCHLORIDE
     Indication: PREMEDICATION
     Route: 048
     Dates: start: 20101215

REACTIONS (8)
  - Weight decreased [Unknown]
  - Infusion related reaction [Unknown]
  - Skin ulcer [Recovered/Resolved]
  - Oral pruritus [Recovered/Resolved]
  - Blood pressure increased [Unknown]
  - Hypotension [Unknown]
  - Blood cholesterol abnormal [Unknown]
  - Blood pressure fluctuation [Unknown]

NARRATIVE: CASE EVENT DATE: 20130130
